FAERS Safety Report 9273057 (Version 1)
Quarter: 2013Q2

REPORT INFORMATION
  Report Type: Spontaneous
  Country: US (occurrence: US)
  Receive Date: 20130506
  Receipt Date: 20130506
  Transmission Date: 20140414
  Serious: Yes (Other)
  Sender: FDA-Public Use
  Company Number: PHEH2013US009576

PATIENT
  Sex: Female

DRUGS (1)
  1. EXELON PATCH [Suspect]
     Route: 062

REACTIONS (2)
  - Cerebral atrophy [Unknown]
  - Confusional state [Unknown]
